FAERS Safety Report 16850096 (Version 3)
Quarter: 2020Q1

REPORT INFORMATION
  Report Type: Spontaneous
  Country: US (occurrence: US)
  Receive Date: 20190925
  Receipt Date: 20200127
  Transmission Date: 20200409
  Serious: Yes (Other)
  Sender: FDA-Public Use
  Company Number: US-BAYER-2019-172440

PATIENT
  Age: 22 Year
  Sex: Female

DRUGS (1)
  1. MIRENA [Suspect]
     Active Substance: LEVONORGESTREL
     Indication: CONTRACEPTION
     Dosage: 20 MCG/24HR, CONT
     Route: 015

REACTIONS (5)
  - Infection [None]
  - Drug ineffective [None]
  - Pregnancy with contraceptive device [Recovered/Resolved]
  - Premature delivery [Recovered/Resolved]
  - Device dislocation [None]

NARRATIVE: CASE EVENT DATE: 2006
